FAERS Safety Report 7988521-6 (Version None)
Quarter: 2011Q4

REPORT INFORMATION
  Report Type: 
  Country: None (occurrence: None)
  Receive Date: 20111217
  Receipt Date: 20111208
  Transmission Date: 20120403
  Serious: Yes (Hospitalization, Other)
  Sender: FDA-Public Use
  Company Number: BR-BIOMARINP-002157

PATIENT
  Sex: Male
  Weight: 22.8 kg

DRUGS (5)
  1. NAGLAZYME [Suspect]
     Indication: MUCOPOLYSACCHARIDOSIS VI
     Route: 041
     Dates: start: 20040709
  2. NASAL SALINE SOLUTION [Concomitant]
     Indication: PRODUCT USED FOR UNKNOWN INDICATION
     Route: 045
  3. CEFTRIOXONE [Concomitant]
  4. IBUPROFEN [Concomitant]
     Indication: PYREXIA
     Route: 048
  5. FENOTEROL [Concomitant]
     Indication: PRODUCT USED FOR UNKNOWN INDICATION

REACTIONS (3)
  - UPPER RESPIRATORY TRACT INFECTION [None]
  - SINUSITIS [None]
  - EAR INFECTION [None]
